FAERS Safety Report 23922690 (Version 1)
Quarter: 2024Q2

REPORT INFORMATION
  Report Type: Spontaneous
  Country: US (occurrence: US)
  Receive Date: 20240531
  Receipt Date: 20240531
  Transmission Date: 20240715
  Serious: No
  Sender: FDA-Public Use
  Company Number: US-ELI_LILLY_AND_COMPANY-US202405016611

PATIENT
  Age: 52 Year
  Sex: Female

DRUGS (7)
  1. TALTZ [Suspect]
     Active Substance: IXEKIZUMAB
     Indication: Ankylosing spondylitis
     Dosage: UNK UNK, UNKNOWN
     Route: 058
  2. TALTZ [Suspect]
     Active Substance: IXEKIZUMAB
     Indication: Ankylosing spondylitis
     Dosage: UNK UNK, UNKNOWN
     Route: 058
  3. TALTZ [Suspect]
     Active Substance: IXEKIZUMAB
     Indication: Ankylosing spondylitis
     Dosage: UNK UNK, UNKNOWN
     Route: 058
  4. TALTZ [Suspect]
     Active Substance: IXEKIZUMAB
     Dosage: UNK UNK, MONTHLY (1/M)
     Route: 058
  5. TALTZ [Suspect]
     Active Substance: IXEKIZUMAB
     Dosage: UNK UNK, MONTHLY (1/M)
     Route: 058
  6. TALTZ [Suspect]
     Active Substance: IXEKIZUMAB
     Dosage: UNK UNK, MONTHLY (1/M)
     Route: 058
  7. TALTZ [Suspect]
     Active Substance: IXEKIZUMAB
     Dosage: UNK UNK, MONTHLY (1/M)
     Route: 058

REACTIONS (6)
  - Incorrect dose administered [Unknown]
  - Ankylosing spondylitis [Unknown]
  - Sleep disorder due to general medical condition, insomnia type [Not Recovered/Not Resolved]
  - Injection site erythema [Recovered/Resolved]
  - Injection site urticaria [Recovered/Resolved]
  - Injection site swelling [Recovered/Resolved]
